FAERS Safety Report 9899503 (Version 1)
Quarter: 2014Q1

REPORT INFORMATION
  Report Type: Report from Study
  Country: GB (occurrence: GB)
  Receive Date: 20140214
  Receipt Date: 20140214
  Transmission Date: 20141002
  Serious: Yes (Hospitalization)
  Sender: FDA-Public Use
  Company Number: GB-JNJFOC-20140203133

PATIENT
  Age: 41 Year
  Sex: Male

DRUGS (3)
  1. STELARA [Suspect]
     Indication: PSORIASIS
     Route: 058
  2. LEVETIRACETAM [Concomitant]
     Indication: EPILEPSY
     Route: 065
  3. LEVETIRACETAM [Concomitant]
     Indication: EPILEPSY
     Route: 065

REACTIONS (1)
  - Epilepsy [Recovering/Resolving]
